FAERS Safety Report 6023727-7 (Version None)
Quarter: 2008Q4

REPORT INFORMATION
  Report Type: 
  Country: None (occurrence: None)
  Receive Date: 20081223
  Receipt Date: 20081208
  Transmission Date: 20090506
  Serious: Yes (Life-Threatening, Hospitalization)
  Sender: FDA-Public Use
  Company Number: DSM-2008-00695 (1) LOG NO : 2008_07_31_08

PATIENT
  Age: 53 Year
  Sex: Male

DRUGS (6)
  1. OLMESARTAN MEDOXOMIL [Suspect]
     Indication: HYPERTENSION
     Dosage: 10 MG (10 MG, 1 IN 1 D), ORAL
     Route: 048
     Dates: end: 20080704
  2. METFORMIN HCL [Suspect]
     Indication: TYPE 2 DIABETES MELLITUS
     Dosage: (3 IN 1 D), ORAL
     Route: 048
     Dates: end: 20080704
  3. APROVEL (IRBESARTAN) (300 MILLIGRAM, TABLET) (IRBESARTAN) [Concomitant]
  4. LASILIX (FUROSEMIDE) (40 MILLIGRAM, TABLET) (FUROSEMIDE) [Concomitant]
  5. TAHOR 9ATORVASTATIN CALCIUM) (10 MILLIGRAM, TABLET) (ATORVASTATIN CALC [Concomitant]
  6. CARDENSIL (BISOPROLOL) (BISOPROLOL) [Concomitant]

REACTIONS (14)
  - ANION GAP [None]
  - ATRIAL FIBRILLATION [None]
  - DRUG TOXICITY [None]
  - FALL [None]
  - HAEMODIALYSIS [None]
  - HYPOTHERMIA [None]
  - LACTIC ACIDOSIS [None]
  - LOSS OF CONSCIOUSNESS [None]
  - METABOLIC ACIDOSIS [None]
  - MULTI-ORGAN FAILURE [None]
  - RENAL FAILURE ACUTE [None]
  - RESPIRATORY RATE INCREASED [None]
  - TACHYCARDIA [None]
  - VENTRICULAR ARRHYTHMIA [None]
